FAERS Safety Report 16476975 (Version 1)
Quarter: 2019Q2

REPORT INFORMATION
  Report Type: Spontaneous
  Country: FR (occurrence: FR)
  Receive Date: 20190626
  Receipt Date: 20190626
  Transmission Date: 20190711
  Serious: Yes (Other)
  Sender: FDA-Public Use
  Company Number: FR-CELLTRION INC.-2019FR022289

PATIENT

DRUGS (7)
  1. IMMUNOGLOBULIN [IMMUNOGLOBULINS NOS] [Concomitant]
     Active Substance: IMMUNE GLOBULIN NOS
     Dosage: 2G/KG/M
     Route: 042
  2. RITUXIMAB (UNKNOWN) [Suspect]
     Active Substance: RITUXIMAB
     Indication: IMMUNE-MEDIATED NECROTISING MYOPATHY
     Dosage: UNK
     Route: 042
  3. RITUXIMAB (UNKNOWN) [Suspect]
     Active Substance: RITUXIMAB
     Dosage: UNK, 12 MONTHS AFTER THE FIRST DOSE
     Route: 042
  4. METHOTREXATE. [Concomitant]
     Active Substance: METHOTREXATE
     Dosage: UNK
  5. RITUXIMAB (UNKNOWN) [Suspect]
     Active Substance: RITUXIMAB
     Dosage: UNK, 6 MONTHS AFTER THE FIRST DOSE
     Route: 042
  6. PREDNISONE. [Suspect]
     Active Substance: PREDNISONE
     Indication: IMMUNE-MEDIATED NECROTISING MYOPATHY
     Dosage: UNK
  7. IMMUNOGLOBULIN [IMMUNOGLOBULINS NOS] [Concomitant]
     Active Substance: IMMUNE GLOBULIN NOS
     Dosage: 0.5G/KG/M
     Route: 042

REACTIONS (1)
  - Off label use [Unknown]
